FAERS Safety Report 17847947 (Version 5)
Quarter: 2020Q3

REPORT INFORMATION
  Report Type: Report from Study
  Country: None (occurrence: US)
  Receive Date: 20200601
  Receipt Date: 20200803
  Transmission Date: 20201103
  Serious: Yes (Hospitalization, Other)
  Sender: FDA-Public Use
  Company Number: US-BIOVITRUM-2019US4327

PATIENT
  Age: 32 Year
  Sex: Female

DRUGS (2)
  1. KINERET [Suspect]
     Active Substance: ANAKINRA
     Indication: BEHCET^S SYNDROME
     Route: 058
     Dates: start: 20190802
  2. KINERET [Suspect]
     Active Substance: ANAKINRA
     Dates: start: 20190801

REACTIONS (18)
  - Nasopharyngitis [Unknown]
  - Nasal congestion [Unknown]
  - Injection site pain [Unknown]
  - Bronchitis [Unknown]
  - Sneezing [Unknown]
  - Maternal exposure during pregnancy [Recovered/Resolved]
  - Cough [Unknown]
  - Sinus disorder [Unknown]
  - Rash [Unknown]
  - Pyrexia [Unknown]
  - Immunodeficiency [Unknown]
  - Off label use [Unknown]
  - Fatigue [Unknown]
  - Headache [Unknown]
  - Product dose omission issue [Unknown]
  - Sinusitis [Unknown]
  - Arthralgia [Unknown]
  - Rhinitis allergic [Unknown]

NARRATIVE: CASE EVENT DATE: 20190802
